FAERS Safety Report 5130193-2 (Version None)
Quarter: 2006Q4

REPORT INFORMATION
  Report Type: 
  Country: None (occurrence: None)
  Receive Date: 20061013
  Receipt Date: 20061003
  Transmission Date: 20070319
  Serious: Yes (Other)
  Sender: FDA-Public Use
  Company Number: 230695

PATIENT
  Age: 68 Year
  Sex: Female

DRUGS (2)
  1. AVASTIN [Suspect]
     Indication: MACULAR DEGENERATION
     Dosage: INTRAVITREAL
     Route: 050
     Dates: start: 20060807
  2. EYE DROPS [Concomitant]

REACTIONS (3)
  - FACE OEDEMA [None]
  - INTRAOCULAR PRESSURE INCREASED [None]
  - UNEVALUABLE EVENT [None]
